FAERS Safety Report 9767863 (Version 1)
Quarter: 2013Q3

REPORT INFORMATION
  Report Type: Spontaneous
  Country: DE (occurrence: None)
  Receive Date: 20130827
  Receipt Date: 20130827
  Transmission Date: 20140515
  Serious: Yes (Hospitalization, Other)
  Sender: FDA-Public Use
  Company Number: 062-21880-13032087

PATIENT
  Age: 71 Year
  Sex: Female
  Weight: 119.2 kg

DRUGS (23)
  1. REVLIMID [Suspect]
     Indication: PLASMA CELL MYELOMA
     Route: 048
     Dates: start: 20120615
  2. DEXAMETHASONE (DEXAMETHASONE) [Suspect]
     Indication: PLASMA CELL MYELOMA
     Dosage: 28 MG ON DAY 1 + DAY 15 AND 40MG ON DAY 8 + 22 OF EACH CYCLE
     Route: 048
     Dates: start: 20120615
  3. ELOTUZUMAB [Suspect]
     Indication: PLASMA CELL MYELOMA
     Route: 042
     Dates: start: 20120615
  4. ALLOPURINOL [Concomitant]
  5. POTASSIUM (POTASSIUM) [Concomitant]
  6. METOPROLOL (METOPROLOL) [Concomitant]
  7. AMLODIPINE (AMLODIPINE) [Concomitant]
  8. THIAMAZOL (THIAMAZOL) [Concomitant]
  9. METAMIZOLE (METAMIZOLE) [Concomitant]
  10. ACICLOVIR (ACICLOVIR) [Concomitant]
  11. COTRIM FORTE (BACTRIM) [Concomitant]
  12. AMPHOTERICIN (AMPHOTERICIN) [Concomitant]
  13. FOLIC ACID (FOLIC ACID) [Concomitant]
  14. CHLORHEXIDINE (CHLORHEXIDINE) [Concomitant]
  15. XIPAMIDE (XIPAMIDE) [Concomitant]
  16. SPIRONOLACTON (SPIRONOLACTONE) [Concomitant]
  17. LACTULOSE (LACTULOSE) [Concomitant]
  18. ACETYLSALICYLIC ACID (ACETYLSALICYLIC ACID) [Concomitant]
  19. PANTOPRAZOL (PANTOPRAZOLE) [Concomitant]
  20. ALDACTONE (ALDACTONE) [Concomitant]
  21. TORASEMID (TORASEMIDE) [Concomitant]
  22. CERTOPARIN-SODIUM [Concomitant]
  23. BISACODYL (BISACODYL) [Concomitant]

REACTIONS (2)
  - Rectosigmoid cancer stage I [None]
  - Blood creatinine increased [None]
